FAERS Safety Report 5009909-1 (Version None)
Quarter: 2006Q2

REPORT INFORMATION
  Report Type: 
  Country: None (occurrence: None)
  Receive Date: 20060524
  Receipt Date: 20060517
  Transmission Date: 20061013
  Serious: Yes (Other)
  Sender: FDA-Public Use
  Company Number: US-BRISTOL-MYERS SQUIBB COMPANY-13380274

PATIENT
  Age: 54 Year
  Sex: Female

DRUGS (2)
  1. GLUCOPHAGE [Suspect]
  2. METFORMIN HYDROCHLORIDE [Suspect]

REACTIONS (2)
  - DRUG INEFFECTIVE [None]
  - GASTRIC BYPASS [None]
